FAERS Safety Report 23150857 (Version 2)
Quarter: 2024Q1

REPORT INFORMATION
  Report Type: Spontaneous
  Country: US (occurrence: US)
  Receive Date: 20231106
  Receipt Date: 20240129
  Transmission Date: 20240409
  Serious: Yes (Death, Hospitalization, Other)
  Sender: FDA-Public Use
  Company Number: US-PFIZER INC-PV202300181035

PATIENT
  Age: 69 Year
  Sex: Female
  Weight: 36.281 kg

DRUGS (5)
  1. IBRANCE [Suspect]
     Active Substance: PALBOCICLIB
     Indication: Breast cancer metastatic
     Dosage: 100 MG
  2. IBRANCE [Suspect]
     Active Substance: PALBOCICLIB
     Dosage: (125 MG ONCE A DAY, 3 WEEKS ON 1 WEEK OFF )
     Dates: start: 20210707, end: 20220916
  3. LETROZOLE [Concomitant]
     Active Substance: LETROZOLE
     Dosage: UNK
     Dates: start: 202106, end: 20220714
  4. FULVESTRANT [Concomitant]
     Active Substance: FULVESTRANT
     Dosage: UNK
     Dates: start: 202207, end: 20220916
  5. ZOLEDRONIC ACID [Concomitant]
     Active Substance: ZOLEDRONIC ACID
     Dosage: UNK
     Dates: start: 202106, end: 202212

REACTIONS (19)
  - Death [Fatal]
  - Pulmonary oedema [Fatal]
  - Constipation [Fatal]
  - Ascites [Unknown]
  - Neutropenia [Unknown]
  - Sepsis [Unknown]
  - Dysphagia [Unknown]
  - Hepatic failure [Unknown]
  - Renal disorder [Unknown]
  - Asthenia [Unknown]
  - Weight decreased [Unknown]
  - Feeding disorder [Unknown]
  - Gastrointestinal disorder [Recovered/Resolved]
  - Febrile neutropenia [Recovered/Resolved]
  - Abdominal pain upper [Unknown]
  - Small intestinal obstruction [Unknown]
  - Full blood count decreased [Unknown]
  - Hair growth abnormal [Unknown]
  - Impaired healing [Unknown]

NARRATIVE: CASE EVENT DATE: 20220901
